FAERS Safety Report 8461826-0 (Version None)
Quarter: 2012Q2

REPORT INFORMATION
  Report Type: 
  Country: None (occurrence: None)
  Receive Date: 20120625
  Receipt Date: 20120612
  Transmission Date: 20120825
  Serious: Yes (Hospitalization)
  Sender: FDA-Public Use
  Company Number: DE-AMGEN-DEUCT2012037933

PATIENT
  Age: 55 Year
  Sex: Female

DRUGS (6)
  1. ETANERCEPT [Suspect]
     Indication: RHEUMATOID ARTHRITIS
     Dosage: 50 MG, UNK
     Dates: start: 20110301, end: 20110701
  2. METOHEXAL                          /00376902/ [Concomitant]
     Dosage: UNK
     Dates: start: 20100101
  3. METHYLPREDNISOLONE [Concomitant]
     Dosage: 4 MG, UNK
     Dates: start: 20110301
  4. METHOTREXATE [Concomitant]
     Dosage: 15 MG, WEEKLY
     Route: 048
     Dates: start: 20031201, end: 20110701
  5. ISONIAZID [Concomitant]
     Dosage: 300 MG, UNK
     Dates: start: 20110101
  6. IBUPROFEN [Concomitant]
     Dosage: 600 MG, UNK
     Dates: start: 20101001

REACTIONS (2)
  - BURSITIS INFECTIVE STAPHYLOCOCCAL [None]
  - BURSA REMOVAL [None]
